FAERS Safety Report 12723044 (Version 1)
Quarter: 2016Q3

REPORT INFORMATION
  Report Type: Spontaneous
  Country: CA (occurrence: CA)
  Receive Date: 20160908
  Receipt Date: 20160908
  Transmission Date: 20161109
  Serious: Yes (Life-Threatening, Hospitalization)
  Sender: FDA-Public Use
  Company Number: CA-BAXTER-2016BAX046023

PATIENT
  Age: 44 Year
  Sex: Female
  Weight: 69 kg

DRUGS (22)
  1. COD LIVER OIL [Concomitant]
     Active Substance: COD LIVER OIL
     Indication: PRODUCT USED FOR UNKNOWN INDICATION
     Dosage: DOSE: 40 MINIMS
     Route: 048
  2. 0.9% SODIUM CHLORIDE INJECTION [Suspect]
     Active Substance: SODIUM CHLORIDE
     Indication: MEDICATION DILUTION
     Dosage: WITH PROCYTOX IN FEC CYCLE-1
     Route: 042
     Dates: start: 20160512, end: 20160512
  3. 0.9% SODIUM CHLORIDE INJECTION [Suspect]
     Active Substance: SODIUM CHLORIDE
     Dosage: WITH PROCYTOX IN FEC CYCLE-2
     Route: 042
     Dates: start: 20160607
  4. 5 FLUOROURACIL [Suspect]
     Active Substance: FLUOROURACIL
     Dosage: 500 MG/M2; FEC CYCLE-3
     Route: 065
  5. ONDANSETRON [Suspect]
     Active Substance: ONDANSETRON
     Indication: ANTIEMETIC SUPPORTIVE CARE
     Dosage: DAY 1
     Route: 048
  6. 5 FLUOROURACIL [Suspect]
     Active Substance: FLUOROURACIL
     Dosage: 500 MG/M2; FEC CYCLE-2
     Route: 065
  7. EPIRUBICIN [Suspect]
     Active Substance: EPIRUBICIN
     Indication: TRIPLE NEGATIVE BREAST CANCER
     Dosage: 100 MG/M2; FEC CYCLE-1
     Route: 065
     Dates: start: 20160512
  8. DEXAMETHASONE. [Suspect]
     Active Substance: DEXAMETHASONE
     Indication: ANTIEMETIC SUPPORTIVE CARE
     Dosage: ON DAYS 2 AND 3
     Route: 048
  9. PREVEX B [Concomitant]
     Indication: PRODUCT USED FOR UNKNOWN INDICATION
     Dosage: CREAM TOP, DAILY PM
     Route: 065
  10. PROCYTOX (CYCLOPHOSPHAMIDE) 2000MG/VIAL [Suspect]
     Active Substance: CYCLOPHOSPHAMIDE
     Dosage: VIAL; IN NS 100 ML; 500 MG/M2;FEC CYCLE-3
     Route: 042
  11. EPIRUBICIN [Suspect]
     Active Substance: EPIRUBICIN
     Dosage: 100 MG/M2; FEC CYCLE-2
     Route: 065
  12. DEXAMETHASONE. [Suspect]
     Active Substance: DEXAMETHASONE
     Indication: PREMEDICATION
     Route: 048
  13. METOCLOPRAMIDE. [Suspect]
     Active Substance: METOCLOPRAMIDE
     Indication: ANTIEMETIC SUPPORTIVE CARE
     Dosage: Q4-6H PRN
     Route: 048
  14. 0.9% SODIUM CHLORIDE INJECTION [Suspect]
     Active Substance: SODIUM CHLORIDE
     Dosage: WITH PROCYTOX IN FEC CYCLE-3
     Route: 042
  15. PROCYTOX (CYCLOPHOSPHAMIDE) 2000MG/VIAL [Suspect]
     Active Substance: CYCLOPHOSPHAMIDE
     Indication: TRIPLE NEGATIVE BREAST CANCER
     Dosage: VIAL; IN NS 100 ML; 500 MG/M2;FEC CYCLE-1
     Route: 042
     Dates: start: 20160512, end: 20160512
  16. PROCYTOX (CYCLOPHOSPHAMIDE) 2000MG/VIAL [Suspect]
     Active Substance: CYCLOPHOSPHAMIDE
     Dosage: VIAL; IN NS 100 ML; 500 MG/M2;FEC CYCLE-2
     Route: 042
     Dates: start: 20160607
  17. APREPITANT. [Suspect]
     Active Substance: APREPITANT
     Indication: ANTIEMETIC SUPPORTIVE CARE
     Dosage: ON DAYS 2 AND 3
     Route: 048
  18. PEGFILGRASTIM [Suspect]
     Active Substance: PEGFILGRASTIM
     Indication: PRODUCT USED FOR UNKNOWN INDICATION
     Dosage: 24 HOURS POST CHEMOTHERAPY
     Route: 058
  19. 5 FLUOROURACIL [Suspect]
     Active Substance: FLUOROURACIL
     Indication: TRIPLE NEGATIVE BREAST CANCER
     Dosage: 500 MG/M2; FEC CYCLE-1
     Route: 065
     Dates: start: 20160512
  20. EPIRUBICIN [Suspect]
     Active Substance: EPIRUBICIN
     Dosage: 100 MG/M2; FEC CYCLE-3
     Route: 065
  21. APREPITANT. [Suspect]
     Active Substance: APREPITANT
     Indication: PREMEDICATION
     Route: 048
  22. ONDANSETRON [Suspect]
     Active Substance: ONDANSETRON
     Indication: PREMEDICATION
     Route: 048

REACTIONS (3)
  - Polydipsia [Recovering/Resolving]
  - Hyponatraemia [Recovered/Resolved]
  - Flushing [Recovered/Resolved]

NARRATIVE: CASE EVENT DATE: 20160514
